FAERS Safety Report 11950528 (Version 1)
Quarter: 2016Q1

REPORT INFORMATION
  Report Type: Spontaneous
  Country: US (occurrence: None)
  Receive Date: 20160122
  Receipt Date: 20160122
  Transmission Date: 20160526
  Serious: Yes (Other)
  Sender: FDA-Public Use
  Company Number: None

PATIENT
  Age: 55 Year
  Sex: Male

DRUGS (7)
  1. LIMIGAND [Concomitant]
  2. TIMMILOL [Concomitant]
  3. METHOTREXATE [Concomitant]
     Active Substance: METHOTREXATE
  4. HUMIRA [Suspect]
     Active Substance: ADALIMUMAB
     Indication: RHEUMATOID ARTHRITIS
     Route: 058
     Dates: start: 20141015
  5. LIMIGAN [Concomitant]
  6. TIMMOX [Concomitant]
  7. FOLIC ACID. [Concomitant]
     Active Substance: FOLIC ACID

REACTIONS (1)
  - Spinal cord neoplasm [None]
